FAERS Safety Report 8453896-0 (Version None)
Quarter: 2012Q2

REPORT INFORMATION
  Report Type: 
  Country: None (occurrence: None)
  Receive Date: 20120323
  Receipt Date: 20110915
  Transmission Date: 20120825
  Serious: Yes (Hospitalization, Other)
  Sender: FDA-Public Use
  Company Number: 163-21880-11091991

PATIENT
  Age: 59 Year
  Sex: Female

DRUGS (8)
  1. DEPAKOTE [Concomitant]
  2. PRAVASTATIN [Concomitant]
  3. SPIRONOLACTONE [Concomitant]
  4. XANAX [Concomitant]
  5. HYDROCHLOROTHIAZIDE [Concomitant]
  6. LEVOTHYROXINE [Concomitant]
  7. REVLIMID [Suspect]
     Indication: MYELODYSPLASTIC SYNDROME
     Dosage: 10 MG, QD X21D, PO  TEMPORARILY INTERRUPTED
     Route: 048
     Dates: start: 20110401
  8. ASPIRIN [Concomitant]

REACTIONS (3)
  - FALL [None]
  - SALMONELLOSIS [None]
  - LUMBAR VERTEBRAL FRACTURE [None]
